FAERS Safety Report 4315765-7 (Version None)
Quarter: 2004Q1

REPORT INFORMATION
  Report Type: 
  Country: None (occurrence: None)
  Receive Date: 20040310
  Receipt Date: 20040223
  Transmission Date: 20041129
  Serious: Yes (Death)
  Sender: FDA-Public Use
  Company Number: 2004AP00536

PATIENT
  Age: 57 Year
  Sex: Male

DRUGS (19)
  1. IRESSA [Suspect]
     Indication: NON-SMALL CELL LUNG CANCER
     Dosage: 250 MG DAILY PO
     Route: 048
     Dates: start: 20040116, end: 20040127
  2. IRESSA [Suspect]
     Indication: SQUAMOUS CELL CARCINOMA
     Dosage: 250 MG DAILY PO
     Route: 048
     Dates: start: 20040116, end: 20040127
  3. MITOMYCIN [Concomitant]
  4. VINDESINE [Concomitant]
  5. CISPLATIN [Concomitant]
  6. RADIATION THERAPY [Concomitant]
  7. PARIET [Concomitant]
  8. GANATON [Concomitant]
  9. MAG-LAX [Concomitant]
  10. LAC B [Concomitant]
  11. PURSENNID [Concomitant]
  12. LOXONIN [Concomitant]
  13. MOHRUS [Concomitant]
  14. TETRAMIDE [Concomitant]
  15. LASIX [Concomitant]
  16. TETRAMIDE [Concomitant]
  17. ENSURE [Concomitant]
  18. KENEI G [Concomitant]
  19. ISOTONIC SODIUM CHLORIDE [Concomitant]

REACTIONS (7)
  - ASCITES [None]
  - GENERAL PHYSICAL HEALTH DETERIORATION [None]
  - HYPERCALCAEMIA [None]
  - LUNG SQUAMOUS CELL CARCINOMA STAGE UNSPECIFIED [None]
  - MALIGNANT NEOPLASM PROGRESSION [None]
  - RADIATION PNEUMONITIS [None]
  - RENAL FAILURE [None]
